FAERS Safety Report 4394808-9 (Version None)
Quarter: 2004Q3

REPORT INFORMATION
  Report Type: 
  Country: None (occurrence: None)
  Receive Date: 20040706
  Receipt Date: 20040629
  Transmission Date: 20050211
  Serious: Yes (Other)
  Sender: FDA-Public Use
  Company Number: 2004-06-2114

PATIENT
  Age: 74 Year
  Sex: Male

DRUGS (1)
  1. TEMODAL [Suspect]
     Dosage: ORAL
     Route: 048

REACTIONS (2)
  - MALAISE [None]
  - PNEUMONIA [None]
